FAERS Safety Report 4822196-X (Version None)
Quarter: 2005Q4

REPORT INFORMATION
  Report Type: 
  Country: None (occurrence: None)
  Receive Date: 20051103
  Receipt Date: 20051025
  Transmission Date: 20060501
  Serious: Yes (Death, Hospitalization)
  Sender: FDA-Public Use
  Company Number: AZAUS200500249

PATIENT
  Age: 63 Year
  Sex: Female
  Weight: 66.6788 kg

DRUGS (4)
  1. VIDAZA [Suspect]
     Indication: MYELODYSPLASTIC SYNDROME
     Dosage: 70 MG/M2 (125 MG), SUBCUTANEOUS
     Route: 058
     Dates: start: 20050620, end: 20050626
  2. DESFERAL (DEFEROXAMINE MESILATE) [Concomitant]
  3. PROCRIT [Concomitant]
  4. VITAMIN C(ASCORBIC ACID) [Concomitant]

REACTIONS (9)
  - ANAEMIA [None]
  - CEREBRAL HAEMATOMA [None]
  - HAEMORRHAGE INTRACRANIAL [None]
  - INTERNATIONAL NORMALISED RATIO INCREASED [None]
  - LEUKAEMIA CUTIS [None]
  - LOSS OF CONSCIOUSNESS [None]
  - MENTAL STATUS CHANGES [None]
  - PLATELET COUNT DECREASED [None]
  - PURPURA [None]
